FAERS Safety Report 9059161 (Version 1)
Quarter: 2013Q1

REPORT INFORMATION
  Report Type: Spontaneous
  Country: US (occurrence: US)
  Receive Date: 20130211
  Receipt Date: 20130211
  Transmission Date: 20140127
  Serious: No
  Sender: FDA-Public Use
  Company Number: US-BRISTOL-MYERS SQUIBB COMPANY-17109265

PATIENT
  Age: 50 Year
  Sex: Female

DRUGS (3)
  1. METFORMIN HYDROCHLORIDE\SAXAGLIPTIN [Suspect]
     Dosage: 1 DF: 2TABS,2.5 MG /1000MG
     Dates: start: 20120815
  2. METFORMIN HCL [Suspect]
  3. GLIMEPIRIDE [Concomitant]

REACTIONS (3)
  - Dizziness [Unknown]
  - Syncope [Unknown]
  - Blood glucose decreased [Unknown]
